FAERS Safety Report 25229999 (Version 2)
Quarter: 2025Q3

REPORT INFORMATION
  Report Type: Spontaneous
  Country: BR (occurrence: BR)
  Receive Date: 20250423
  Receipt Date: 20250803
  Transmission Date: 20251020
  Serious: Yes (Life-Threatening, Hospitalization, Other)
  Sender: ALEXION PHARMACEUTICALS
  Company Number: BR-AstraZeneca-CH-00852012A

PATIENT
  Age: 11 Year
  Sex: Male
  Weight: 80 kg

DRUGS (2)
  1. SYMBICORT [Suspect]
     Active Substance: BUDESONIDE\FORMOTEROL FUMARATE DIHYDRATE
     Dosage: 6/200 MCG, A INHALATION IN THE MORNING AND A INHALATION AT NIGHT
     Route: 065
  2. SYMBICORT [Suspect]
     Active Substance: BUDESONIDE\FORMOTEROL FUMARATE DIHYDRATE
     Route: 065

REACTIONS (6)
  - Asthma [Unknown]
  - Wrong technique in product usage process [Unknown]
  - Attention deficit hyperactivity disorder [Unknown]
  - Anxiety [Unknown]
  - Obesity [Unknown]
  - Medication error [Unknown]

NARRATIVE: CASE EVENT DATE: 20240101
